FAERS Safety Report 9498403 (Version 8)
Quarter: 2016Q4

REPORT INFORMATION
  Report Type: Spontaneous
  Country: US (occurrence: US)
  Receive Date: 20130904
  Receipt Date: 20161006
  Transmission Date: 20170207
  Serious: Yes (Death, Hospitalization, Other)
  Sender: FDA-Public Use
  Company Number: US-GLAXOSMITHKLINE-A1039875A

PATIENT
  Age: 41 Year
  Sex: Female

DRUGS (10)
  1. BENLYSTA [Suspect]
     Active Substance: BELIMUMAB
     Indication: SYSTEMIC LUPUS ERYTHEMATOSUS
     Dosage: TOTAL OF 10 MONTHLY BELIMUMAB INFUSIONS FROMAUGUST 2012 THROUGH APRIL 2013.
     Route: 042
     Dates: start: 201208, end: 20130406
  2. METHOTREXATE. [Concomitant]
     Active Substance: METHOTREXATE
     Indication: PRODUCT USED FOR UNKNOWN INDICATION
  3. CYTOXAN [Concomitant]
     Active Substance: CYCLOPHOSPHAMIDE
     Indication: PRODUCT USED FOR UNKNOWN INDICATION
  4. CELLCEPT [Suspect]
     Active Substance: MYCOPHENOLATE MOFETIL\MYCOPHENOLATE MOFETIL HYDROCHLORIDE
     Indication: PRODUCT USED FOR UNKNOWN INDICATION
     Route: 065
  5. SOLU-MEDROL [Concomitant]
     Active Substance: METHYLPREDNISOLONE SODIUM SUCCINATE
     Indication: PRODUCT USED FOR UNKNOWN INDICATION
  6. STEROIDS [Concomitant]
     Active Substance: UNSPECIFIED INGREDIENT
     Indication: PRODUCT USED FOR UNKNOWN INDICATION
  7. CORTICOSTEROIDS [Concomitant]
     Active Substance: CORTICOSTEROID NOS
     Indication: PRODUCT USED FOR UNKNOWN INDICATION
  8. MYCOPHENOLATE MOFETIL. [Concomitant]
     Active Substance: MYCOPHENOLATE MOFETIL
     Indication: SYSTEMIC LUPUS ERYTHEMATOSUS
     Route: 065
  9. PREDNISONE. [Concomitant]
     Active Substance: PREDNISONE
     Indication: SYSTEMIC LUPUS ERYTHEMATOSUS
     Route: 065
  10. H.P. ACTHAR [Concomitant]
     Active Substance: CORTICOTROPIN
     Indication: PRODUCT USED FOR UNKNOWN INDICATION

REACTIONS (19)
  - Progressive multifocal leukoencephalopathy [Fatal]
  - Facial paralysis [Not Recovered/Not Resolved]
  - Lupus encephalitis [Not Recovered/Not Resolved]
  - Swelling face [Not Recovered/Not Resolved]
  - Cerebrovascular accident [Not Recovered/Not Resolved]
  - JC virus infection [Not Recovered/Not Resolved]
  - Viral infection [Not Recovered/Not Resolved]
  - Aphasia [Not Recovered/Not Resolved]
  - Hypertension [Unknown]
  - Drooling [Not Recovered/Not Resolved]
  - Tachycardia [Unknown]
  - Neurological decompensation [Unknown]
  - Bulbar palsy [Unknown]
  - Speech disorder [Not Recovered/Not Resolved]
  - Abasia [Not Recovered/Not Resolved]
  - Dysphagia [Not Recovered/Not Resolved]
  - Sensation of foreign body [Not Recovered/Not Resolved]
  - Ill-defined disorder [Unknown]
  - Dystonia [Unknown]

NARRATIVE: CASE EVENT DATE: 201304
